FAERS Safety Report 18070880 (Version 3)
Quarter: 2020Q3

REPORT INFORMATION
  Report Type: Spontaneous
  Country: JP (occurrence: JP)
  Receive Date: 20200727
  Receipt Date: 20200901
  Transmission Date: 20201103
  Serious: Yes (Other)
  Sender: FDA-Public Use
  Company Number: JP-GLAXOSMITHKLINE-JP2020137584

PATIENT
  Age: 9 Decade
  Sex: Male

DRUGS (5)
  1. AVOLVE [Suspect]
     Active Substance: DUTASTERIDE
     Indication: BENIGN PROSTATIC HYPERPLASIA
     Dosage: 1 DF, QD
     Route: 048
     Dates: start: 20200619
  2. BI SIFROL [Concomitant]
     Active Substance: PRAMIPEXOLE
     Dosage: UNK
  3. BAYASPIRIN [Concomitant]
     Active Substance: ASPIRIN
     Dosage: UNK
  4. MEVALOTIN [Concomitant]
     Active Substance: PRAVASTATIN SODIUM
     Indication: HYPERLIPIDAEMIA
     Dosage: UNK
  5. EQUA [Concomitant]
     Active Substance: VILDAGLIPTIN
     Indication: DIABETES MELLITUS
     Dosage: UNK

REACTIONS (1)
  - Bradycardia [Not Recovered/Not Resolved]

NARRATIVE: CASE EVENT DATE: 20200720
